FAERS Safety Report 18137796 (Version 2)
Quarter: 2020Q3

REPORT INFORMATION
  Report Type: Spontaneous
  Country: DE (occurrence: DE)
  Receive Date: 20200811
  Receipt Date: 20200813
  Transmission Date: 20201103
  Serious: Yes (Hospitalization)
  Sender: FDA-Public Use
  Company Number: DE-PFIZER INC-2020304832

PATIENT
  Age: 17 Year
  Sex: Female

DRUGS (5)
  1. PANTOPRAZOLE [Suspect]
     Active Substance: PANTOPRAZOLE
     Indication: SUICIDAL IDEATION
     Dosage: 2 DF
     Route: 065
     Dates: start: 20190216
  2. LEVOMEPROMAZIN [LEVOMEPROMAZINE] [Suspect]
     Active Substance: LEVOMEPROMAZINE
     Indication: SUICIDAL IDEATION
     Dosage: 25 MILLIGRAM
     Route: 065
     Dates: start: 20190216
  3. ARIPIPRAZOL [Suspect]
     Active Substance: ARIPIPRAZOLE
     Indication: SUICIDAL IDEATION
     Dosage: 15 MILLIGRAM
     Route: 065
     Dates: start: 20190216
  4. MIRTAZAPIN [Suspect]
     Active Substance: MIRTAZAPINE
     Indication: SUICIDAL IDEATION
     Dosage: 60 MILLIGRAM
     Route: 065
     Dates: start: 20190216
  5. ALKOHOL [Suspect]
     Active Substance: ALCOHOL
     Indication: SUICIDAL IDEATION
     Dosage: UNK
     Route: 065
     Dates: start: 20190216

REACTIONS (2)
  - Toxicity to various agents [Unknown]
  - Intentional overdose [Unknown]

NARRATIVE: CASE EVENT DATE: 20190216
